FAERS Safety Report 24807608 (Version 1)
Quarter: 2025Q1

REPORT INFORMATION
  Report Type: Spontaneous
  Country: US (occurrence: US)
  Receive Date: 20250105
  Receipt Date: 20250105
  Transmission Date: 20250409
  Serious: No
  Sender: JOHNSON AND JOHNSON
  Company Number: US-KENVUE-20241202593

PATIENT
  Age: 5 Year
  Sex: Female

DRUGS (1)
  1. ACETAMINOPHEN [Suspect]
     Active Substance: ACETAMINOPHEN
     Indication: Pyrexia
     Dosage: 2 DOSAGE FORM EVERY SIX HOURS
     Route: 065

REACTIONS (2)
  - Reaction to colouring [Recovering/Resolving]
  - Inappropriate schedule of product administration [Unknown]
